FAERS Safety Report 8886818 (Version 3)
Quarter: 2013Q1

REPORT INFORMATION
  Report Type: Report from Study
  Country: DE (occurrence: DE)
  Receive Date: 20121105
  Receipt Date: 20130312
  Transmission Date: 20140127
  Serious: Yes (Hospitalization)
  Sender: FDA-Public Use
  Company Number: DE-ROCHE-1149713

PATIENT
  Age: 75 Year
  Sex: Female
  Weight: 66 kg

DRUGS (5)
  1. CARBOPLATIN [Suspect]
     Indication: BREAST CANCER
     Dosage: 87 AUC, DATE OF LAST DOSE PRIOR TO SAE: 18/OCT/2012
     Route: 042
     Dates: start: 20120911
  2. TRASTUZUMAB [Suspect]
     Indication: BREAST CANCER
     Dosage: DATE OF LAST DOSE PRIOR TO SAE: 10/OCT/2012
     Route: 042
     Dates: start: 20120911
  3. PACLITAXEL [Suspect]
     Indication: BREAST CANCER
     Dosage: DATE OF LAST DOSE PRIOR TO SAE: 18/OCT/2012
     Route: 042
     Dates: start: 20120911
  4. LAPATINIB [Suspect]
     Indication: BREAST CANCER
     Dosage: DATE OF LAST DOSE PRIOR TO SAE: 21/OCT/2012
     Route: 048
     Dates: start: 20120911
  5. DOXORUBICIN HCL LIPOSOME [Suspect]
     Indication: BREAST CANCER
     Dosage: DATE OF LAST DOSE PRIOR TO SAE: 18/OCT/2012
     Route: 042
     Dates: start: 20120911

REACTIONS (1)
  - Orthostatic intolerance [Recovered/Resolved]
